FAERS Safety Report 7578168-8 (Version None)
Quarter: 2011Q2

REPORT INFORMATION
  Report Type: 
  Country: None (occurrence: None)
  Receive Date: 20110628
  Receipt Date: 20110623
  Transmission Date: 20111010
  Serious: Yes (Death, Hospitalization)
  Sender: FDA-Public Use
  Company Number: A0932726A

PATIENT
  Age: 81 Year
  Sex: Male

DRUGS (5)
  1. NEXIUM [Concomitant]
  2. SPIRIVA [Concomitant]
  3. ADVAIR DISKUS 100/50 [Suspect]
     Indication: PNEUMONIA
     Dosage: 1PUFF PER DAY
     Route: 055
     Dates: start: 20050101, end: 20110527
  4. OXYGEN [Concomitant]
  5. VITAMIN TAB [Concomitant]

REACTIONS (4)
  - EMPHYSEMA [None]
  - PNEUMONIA [None]
  - LUNG DISORDER [None]
  - CONDITION AGGRAVATED [None]
